FAERS Safety Report 9939078 (Version 1)
Quarter: 2014Q1

REPORT INFORMATION
  Report Type: Report from Study
  Country: US (occurrence: US)
  Receive Date: 20140303
  Receipt Date: 20140303
  Transmission Date: 20141002
  Serious: No
  Sender: FDA-Public Use
  Company Number: US-ABBVIE-13P-163-1038331-00

PATIENT
  Age: 49 Year
  Sex: Female
  Weight: 86.26 kg

DRUGS (7)
  1. HUMIRA [Suspect]
     Indication: ARTHROPATHY
     Dates: start: 20130107
  2. VICODIN [Concomitant]
     Indication: PAIN
  3. NAPROXEN [Concomitant]
     Indication: PAIN
  4. METHOTREXATE [Concomitant]
     Indication: ARTHROPATHY
  5. FOLIC ACID [Concomitant]
     Indication: PRODUCT USED FOR UNKNOWN INDICATION
  6. METOPROLOL [Concomitant]
     Indication: HEART RATE IRREGULAR
  7. LUNESTA [Concomitant]
     Indication: INSOMNIA

REACTIONS (1)
  - Off label use [Not Recovered/Not Resolved]
